FAERS Safety Report 9783076 (Version 1)
Quarter: 2013Q4

REPORT INFORMATION
  Report Type: Report from Study
  Country: DE (occurrence: DE)
  Receive Date: 20131226
  Receipt Date: 20131226
  Transmission Date: 20140711
  Serious: Yes (Other)
  Sender: FDA-Public Use
  Company Number: PHHY2013DE150283

PATIENT
  Age: 1 Day
  Sex: Male

DRUGS (9)
  1. LEPONEX [Suspect]
     Indication: SCHIZOPHRENIA
     Route: 064
  2. PIRENZEPIN [Concomitant]
     Route: 064
     Dates: start: 20090309, end: 20090511
  3. TAVOR (LORAZEPAM) [Concomitant]
     Route: 064
     Dates: start: 20090309, end: 20090416
  4. SEROQUEL [Concomitant]
     Route: 064
     Dates: start: 20090325, end: 20090407
  5. VALPROIC ACID [Concomitant]
     Route: 064
     Dates: start: 20090310, end: 20090312
  6. RISPERDAL [Concomitant]
     Route: 064
     Dates: start: 20090410, end: 20090416
  7. BIPERIDEN [Concomitant]
     Route: 064
     Dates: start: 20090312, end: 20090312
  8. HALDOL [Concomitant]
     Dosage: UNK UKN, UNK
     Route: 064
     Dates: start: 20090312, end: 20090326
  9. AMISULPRID [Concomitant]
     Dosage: UNK UKN, UNK
     Route: 064

REACTIONS (4)
  - Patent ductus arteriosus [Unknown]
  - Atrial septal defect [Unknown]
  - Neonatal respiratory distress syndrome [Recovered/Resolved]
  - Oxygen saturation decreased [Recovered/Resolved]
